FAERS Safety Report 20780163 (Version 1)
Quarter: 2022Q2

REPORT INFORMATION
  Report Type: Spontaneous
  Country: FR (occurrence: FR)
  Receive Date: 20220503
  Receipt Date: 20220503
  Transmission Date: 20220721
  Serious: Yes (Hospitalization)
  Sender: FDA-Public Use
  Company Number: FR-JNJFOC-20220431370

PATIENT
  Age: 67 Year
  Sex: Male
  Weight: 77 kg

DRUGS (4)
  1. DEXAMETHASONE [Suspect]
     Active Substance: DEXAMETHASONE
     Indication: Plasma cell myeloma
     Dosage: MOST RECENT DOSE ON 07-MAR-2020
     Route: 048
     Dates: start: 20190705
  2. LENALIDOMIDE [Suspect]
     Active Substance: LENALIDOMIDE
     Indication: Plasma cell myeloma
     Dosage: MOST RECENT DOSE ON 22-MAR-2022
     Route: 048
     Dates: start: 20190705
  3. VELCADE [Suspect]
     Active Substance: BORTEZOMIB
     Indication: Plasma cell myeloma
     Dosage: MOST RECENT DOSE ON 07-OCT-2019
     Route: 058
     Dates: start: 20190705
  4. DARATUMUMAB [Suspect]
     Active Substance: DARATUMUMAB
     Indication: Plasma cell myeloma
     Dosage: MOST RECENT DOSE ON 22-FEB-2022
     Route: 058
     Dates: start: 20190705

REACTIONS (1)
  - Biliary colic [Recovered/Resolved]

NARRATIVE: CASE EVENT DATE: 20220322
